FAERS Safety Report 7731338-8 (Version None)
Quarter: 2011Q3

REPORT INFORMATION
  Report Type: 
  Country: None (occurrence: None)
  Receive Date: 20110906
  Receipt Date: 20110701
  Transmission Date: 20111222
  Serious: No
  Sender: FDA-Public Use
  Company Number: US-AMGEN-USASP2011033764

PATIENT
  Age: 80 Year
  Sex: Female

DRUGS (4)
  1. VITAMIN D [Concomitant]
  2. XGEVA [Suspect]
     Indication: METASTASES TO BONE
     Dosage: UNK UNK, Q4WK
     Dates: start: 20110624
  3. MULTIVITAMIN                       /00097801/ [Concomitant]
  4. CALCIUM CARBONATE [Concomitant]

REACTIONS (2)
  - BONE PAIN [None]
  - ARTHRALGIA [None]
